FAERS Safety Report 19059308 (Version 1)
Quarter: 2021Q1

REPORT INFORMATION
  Report Type: Other
  Country: US (occurrence: US)
  Receive Date: 20210326
  Receipt Date: 20210326
  Transmission Date: 20210420
  Serious: No
  Sender: FDA-Public Use
  Company Number: US-NEUROCRINE BIOSCIENCES INC.-2021NBI01201

PATIENT

DRUGS (1)
  1. INGREZZA [Suspect]
     Active Substance: VALBENAZINE
     Indication: TARDIVE DYSKINESIA
     Dosage: 40 MILLIGRAM, QD
     Route: 048
     Dates: start: 20200817

REACTIONS (7)
  - Irritability [Unknown]
  - Vision blurred [Unknown]
  - Balance disorder [Unknown]
  - Dry mouth [Unknown]
  - Constipation [Unknown]
  - Weight decreased [Unknown]
  - Headache [Unknown]
